FAERS Safety Report 7233264-X (Version None)
Quarter: 2011Q1

REPORT INFORMATION
  Report Type: 
  Country: None (occurrence: None)
  Receive Date: 20110119
  Receipt Date: 20101230
  Transmission Date: 20110831
  Serious: Yes (Hospitalization)
  Sender: FDA-Public Use
  Company Number: Z0003158A

PATIENT
  Age: 72 Year
  Sex: Male
  Weight: 105.5 kg

DRUGS (1)
  1. PAZOPANIB [Suspect]
     Indication: RENAL CELL CARCINOMA
     Dosage: 800MG PER DAY
     Route: 048
     Dates: start: 20100112

REACTIONS (5)
  - POLYCYTHAEMIA [None]
  - NAUSEA [None]
  - ASTHENIA [None]
  - HYPERTENSION [None]
  - THROMBOCYTOPENIA [None]
